FAERS Safety Report 6264301-7 (Version None)
Quarter: 2009Q3

REPORT INFORMATION
  Report Type: 
  Country: None (occurrence: None)
  Receive Date: 20090710
  Receipt Date: 20090706
  Transmission Date: 20100115
  Serious: Yes (Other)
  Sender: FDA-Public Use
  Company Number: A0748467A

PATIENT
  Age: 40 Year
  Sex: Female
  Weight: 57.2 kg

DRUGS (3)
  1. LAPATINIB [Suspect]
     Dosage: 1000MG PER DAY
     Route: 048
     Dates: start: 20061211
  2. PACLITAXEL [Suspect]
     Dosage: 132MG CYCLIC
     Route: 042
     Dates: start: 20061211
  3. CARBOPLATIN [Suspect]
     Dosage: 244MG CYCLIC
     Route: 042
     Dates: start: 20061211

REACTIONS (1)
  - NEUTROPENIA [None]
